FAERS Safety Report 7205934-0 (Version None)
Quarter: 2011Q1

REPORT INFORMATION
  Report Type: 
  Country: None (occurrence: None)
  Receive Date: 20110103
  Receipt Date: 20101221
  Transmission Date: 20110831
  Serious: Yes (Hospitalization)
  Sender: FDA-Public Use
  Company Number: US-BIOGENIDEC-2010BI038774

PATIENT
  Age: 57 Year
  Sex: Female
  Weight: 61 kg

DRUGS (5)
  1. CELEBREX [Concomitant]
  2. ALBUTEROL [Concomitant]
     Indication: ASTHMA
  3. TYSABRI [Suspect]
     Indication: MULTIPLE SCLEROSIS
     Route: 042
     Dates: start: 20100827
  4. REQUIP [Concomitant]
     Indication: RESTLESS LEGS SYNDROME
  5. NORVASC [Concomitant]
     Indication: HYPERTENSION

REACTIONS (3)
  - OSTEOMYELITIS [None]
  - MULTIPLE SCLEROSIS RELAPSE [None]
  - BLOOD POTASSIUM DECREASED [None]
